FAERS Safety Report 5947365-7 (Version None)
Quarter: 2008Q4

REPORT INFORMATION
  Report Type: 
  Country: None (occurrence: None)
  Receive Date: 20081110
  Receipt Date: 20081030
  Transmission Date: 20090506
  Serious: Yes (Hospitalization, Other)
  Sender: FDA-Public Use
  Company Number: US-BAXTER-2008BH002020

PATIENT
  Age: 79 Year
  Sex: Male
  Weight: 74 kg

DRUGS (22)
  1. HEPARIN SODIUM INJECTION [Suspect]
     Indication: PROPHYLAXIS
     Route: 033
     Dates: start: 20080101, end: 20080201
  2. HEPARIN SODIUM INJECTION [Suspect]
     Indication: THROMBOSIS PROPHYLAXIS
     Route: 033
     Dates: start: 20080101, end: 20080201
  3. HEPARIN SODIUM INJECTION [Suspect]
     Route: 033
     Dates: start: 20080101, end: 20080201
  4. HEPARIN SODIUM INJECTION [Suspect]
     Route: 033
     Dates: start: 20080101, end: 20080201
  5. HEPARIN SODIUM INJECTION [Suspect]
     Route: 042
     Dates: start: 20080222
  6. HEPARIN SODIUM INJECTION [Suspect]
     Route: 042
     Dates: start: 20080222
  7. HEPARIN SODIUM INJECTION [Suspect]
     Route: 042
     Dates: start: 20080101
  8. HEPARIN SODIUM INJECTION [Suspect]
     Route: 042
     Dates: start: 20080101
  9. HEPARIN SODIUM INJECTION [Suspect]
     Route: 042
     Dates: start: 20080101
  10. HEPARIN SODIUM INJECTION [Suspect]
     Route: 042
     Dates: start: 20080101
  11. CLONIDINE [Concomitant]
     Indication: HYPERTENSION
     Route: 048
     Dates: start: 20070301
  12. DILTIAZEM HCL [Concomitant]
     Indication: HYPERTENSION
     Route: 048
     Dates: start: 20070301
  13. LANTUS [Concomitant]
     Indication: DIABETES MELLITUS
     Dosage: DOSE UNIT:UNKNOWN
     Route: 065
     Dates: start: 20080201
  14. NOVOLIN [Concomitant]
     Indication: DIABETES MELLITUS
     Dosage: DOSE UNIT:UNKNOWN
     Route: 058
     Dates: start: 20070101, end: 20080201
  15. LASIX [Concomitant]
     Indication: DRUG USE FOR UNKNOWN INDICATION
     Dosage: DOSE UNIT:UNKNOWN
     Route: 065
  16. DOCUSATE SODIUM [Concomitant]
     Indication: DRUG USE FOR UNKNOWN INDICATION
     Route: 048
  17. ZOLOFT [Concomitant]
     Indication: DRUG USE FOR UNKNOWN INDICATION
     Route: 048
  18. NORVASC [Concomitant]
     Indication: DRUG USE FOR UNKNOWN INDICATION
     Route: 048
  19. DAILY MULTIVITAMIN [Concomitant]
     Indication: DRUG USE FOR UNKNOWN INDICATION
     Route: 048
  20. TYLENOL [Concomitant]
     Indication: DRUG USE FOR UNKNOWN INDICATION
     Route: 048
  21. ZEMPLAR [Concomitant]
     Indication: DIALYSIS
     Route: 042
  22. EPOGEN [Concomitant]
     Indication: DIALYSIS
     Route: 042

REACTIONS (20)
  - ABDOMINAL DISCOMFORT [None]
  - CONSTIPATION [None]
  - COUGH [None]
  - DIPLOPIA [None]
  - HEADACHE [None]
  - HEART RATE INCREASED [None]
  - HYPERHIDROSIS [None]
  - JOINT SWELLING [None]
  - MALAISE [None]
  - NAUSEA [None]
  - OEDEMA PERIPHERAL [None]
  - PERIPHERAL COLDNESS [None]
  - PERITONEAL DIALYSIS COMPLICATION [None]
  - PRURITUS [None]
  - PYREXIA [None]
  - RASH [None]
  - RESTLESSNESS [None]
  - RETCHING [None]
  - THIRST [None]
  - VOMITING [None]
